FAERS Safety Report 15781325 (Version 1)
Quarter: 2019Q1

REPORT INFORMATION
  Report Type: Spontaneous
  Country: US (occurrence: US)
  Receive Date: 20190102
  Receipt Date: 20190102
  Transmission Date: 20190417
  Serious: No
  Sender: FDA-Public Use
  Company Number: US-SA-2018SA396361

PATIENT
  Sex: Female

DRUGS (1)
  1. DULCOEASE [Suspect]
     Active Substance: DOCUSATE SODIUM
     Dosage: UNK, UNK
     Route: 065

REACTIONS (3)
  - Diarrhoea [Unknown]
  - Constipation [Unknown]
  - Pain [Unknown]
